FAERS Safety Report 15048524 (Version 2)
Quarter: 2019Q4

REPORT INFORMATION
  Report Type: Report from Study
  Country: CO (occurrence: CO)
  Receive Date: 20180622
  Receipt Date: 20191118
  Transmission Date: 20200122
  Serious: Yes (Other)
  Sender: FDA-Public Use
  Company Number: CO-REGENERON PHARMACEUTICALS, INC.-2017-25242

PATIENT

DRUGS (5)
  1. EYLEA [Suspect]
     Active Substance: AFLIBERCEPT
     Dosage: BOTH EYE (FORTH DOSE)
     Route: 031
     Dates: start: 20161118, end: 20161118
  2. EYLEA [Suspect]
     Active Substance: AFLIBERCEPT
     Dosage: BOTH EYE (FIFTH DOSE)
     Route: 031
     Dates: start: 20170919, end: 20170919
  3. EYLEA [Suspect]
     Active Substance: AFLIBERCEPT
     Indication: AGE-RELATED MACULAR DEGENERATION
     Dosage: BOTH EYE (FIRST DOSE)
     Route: 031
     Dates: start: 20160129, end: 20160129
  4. EYLEA [Suspect]
     Active Substance: AFLIBERCEPT
     Dosage: BOTH EYE (SECOND DOSE)
     Route: 031
     Dates: start: 20160329, end: 20160329
  5. EYLEA [Suspect]
     Active Substance: AFLIBERCEPT
     Dosage: BOTH EYE (THRID DOSE)
     Route: 031
     Dates: start: 20160518, end: 20160518

REACTIONS (4)
  - Product prescribing error [Unknown]
  - Eye haemorrhage [Not Recovered/Not Resolved]
  - Inappropriate schedule of product administration [Unknown]
  - Glaucoma [Unknown]

NARRATIVE: CASE EVENT DATE: 201709
